FAERS Safety Report 12574501 (Version 1)
Quarter: 2016Q3

REPORT INFORMATION
  Report Type: Spontaneous
  Country: US (occurrence: US)
  Receive Date: 20160720
  Receipt Date: 20160720
  Transmission Date: 20161109
  Serious: Yes (Hospitalization)
  Sender: FDA-Public Use
  Company Number: US-BIOMARINAP-US-2016-110489

PATIENT
  Sex: Female

DRUGS (1)
  1. KUVAN [Suspect]
     Active Substance: SAPROPTERIN DIHYDROCHLORIDE
     Indication: PRODUCT USED FOR UNKNOWN INDICATION
     Dosage: 20 MG/KG, UNK
     Route: 065

REACTIONS (6)
  - Seizure [Unknown]
  - Vomiting [Unknown]
  - Concussion [Unknown]
  - Back pain [Unknown]
  - Migraine [Unknown]
  - Ligament sprain [Unknown]

NARRATIVE: CASE EVENT DATE: 20160703
